FAERS Safety Report 9105872 (Version 2)
Quarter: 2013Q1

REPORT INFORMATION
  Report Type: Report from Study
  Country: US (occurrence: US)
  Receive Date: 20130220
  Receipt Date: 20130305
  Transmission Date: 20140127
  Serious: Yes (Hospitalization)
  Sender: FDA-Public Use
  Company Number: US-AMGEN-USANI2013005392

PATIENT
  Age: 61 Year
  Sex: Female

DRUGS (20)
  1. DENOSUMAB [Suspect]
     Indication: OSTEOPOROSIS POSTMENOPAUSAL
     Dosage: 60 MG, Q6MO
     Route: 058
     Dates: start: 20120307, end: 20121003
  2. ARICEPT [Concomitant]
     Dosage: 10 MG, QD
     Route: 048
  3. SYNTHROID [Concomitant]
     Dosage: 0.05 MG, QD
     Route: 048
  4. ASPIRIN [Concomitant]
     Dosage: 81 MG, QD
     Route: 048
  5. CALCIUM 600 PLUS VITAMIN D [Concomitant]
     Dosage: UNK UNK, QD
     Route: 048
  6. NAMENDA [Concomitant]
     Dosage: 10 MG, BID
     Route: 048
  7. PROTONIX [Concomitant]
     Dosage: 40 MG, QD
     Route: 048
  8. ZOLOFT [Concomitant]
     Dosage: 5 MG, BID
     Route: 048
  9. VESICARE [Concomitant]
     Dosage: 10 MG, QD
     Route: 048
  10. FLU [Concomitant]
     Dosage: UNK
     Route: 030
  11. SODIUM [Concomitant]
     Dosage: 4 G, UNK
  12. TYLENOL [Concomitant]
     Dosage: 650 MG, AS NECESSARY
  13. ZOFRAN [Concomitant]
     Dosage: 4 MG, AS NECESSARY
     Route: 048
  14. TESSALON PERLE [Concomitant]
     Dosage: UNK UNK, AS NECESSARY
  15. MAGNESIUM OXIDE [Concomitant]
     Dosage: 40 MG, BID
  16. TUMS [Concomitant]
     Dosage: 200 MG, BID
  17. VITAMIN D3 [Concomitant]
     Dosage: 800 UNIT, BID
  18. CEFTIN [Concomitant]
     Dosage: 500 MG, BID
     Route: 048
     Dates: start: 20120901, end: 20120914
  19. BENAZEPRIL [Concomitant]
     Dosage: 10 MG, UNK
  20. SERTRALINE [Concomitant]
     Dosage: 100 MG, UNK

REACTIONS (3)
  - Streptococcal bacteraemia [Recovered/Resolved]
  - Cellulitis [Recovered/Resolved]
  - Pulmonary mass [Not Recovered/Not Resolved]
